FAERS Safety Report 13405575 (Version 1)
Quarter: 2017Q2

REPORT INFORMATION
  Report Type: Spontaneous
  Country: US (occurrence: US)
  Receive Date: 20170405
  Receipt Date: 20170405
  Transmission Date: 20170830
  Serious: Yes (Hospitalization)
  Sender: FDA-Public Use
  Company Number: US-LUPIN PHARMACEUTICALS INC.-2017-01532

PATIENT
  Age: 11 Week
  Sex: Male
  Weight: 3.6 kg

DRUGS (1)
  1. LEVETIRACETAM ORAL SOLUTION [Suspect]
     Active Substance: LEVETIRACETAM
     Indication: PRODUCT USED FOR UNKNOWN INDICATION
     Dosage: 170 MG, SINGLE
     Route: 065

REACTIONS (3)
  - Wrong drug administered [Unknown]
  - No adverse event [Unknown]
  - Accidental overdose [Unknown]
